FAERS Safety Report 8257219 (Version 2)
Quarter: 2012Q4

REPORT INFORMATION
  Report Type: 
  Country: JP (occurrence: JP)
  Receive Date: 20111121
  Receipt Date: 20121030
  Transmission Date: 20130627
  Serious: Yes (Hospitalization)
  Sender: FDA-Public Use
  Company Number: JP-ELI_LILLY_AND_COMPANY-JP201106005286

PATIENT
  Age: 85 Year
  Sex: Male

DRUGS (1)
  1. FORTEO [Suspect]
     Dosage: UNK
     Route: 058
     Dates: start: 201104

REACTIONS (10)
  - Pulpitis dental [Unknown]
  - Influenza [Unknown]
  - Back pain [Recovering/Resolving]
  - Pneumonia [Recovering/Resolving]
  - Pneumonia [Unknown]
  - Myasthenia gravis [Not Recovered/Not Resolved]
  - Dyspnoea [Recovering/Resolving]
  - Toothache [Unknown]
  - Gingival infection [Unknown]
  - Tooth extraction [Recovered/Resolved]
